FAERS Safety Report 7082573-6 (Version None)
Quarter: 2010Q4

REPORT INFORMATION
  Report Type: 
  Country: None (occurrence: None)
  Receive Date: 20101104
  Receipt Date: 20101025
  Transmission Date: 20110411
  Serious: Yes (Hospitalization)
  Sender: FDA-Public Use
  Company Number: FR-JNJFOC-20101007411

PATIENT
  Sex: Female

DRUGS (4)
  1. RISPERDAL [Suspect]
     Indication: ILL-DEFINED DISORDER
     Route: 065
  2. TERCIAN [Concomitant]
     Indication: ILL-DEFINED DISORDER
     Route: 065
  3. ZOPICLONE [Concomitant]
     Indication: ILL-DEFINED DISORDER
     Route: 065
  4. ARTANE [Concomitant]
     Indication: ILL-DEFINED DISORDER
     Route: 065

REACTIONS (2)
  - SHOCK HAEMORRHAGIC [None]
  - SUICIDE ATTEMPT [None]
